FAERS Safety Report 9474946 (Version 1)
Quarter: 2013Q3

REPORT INFORMATION
  Report Type: Report from Study
  Country: CA (occurrence: CA)
  Receive Date: 20130824
  Receipt Date: 20130824
  Transmission Date: 20140515
  Serious: Yes (Death)
  Sender: FDA-Public Use
  Company Number: CA-ROCHE-1265552

PATIENT
  Sex: Male
  Weight: 77.1 kg

DRUGS (6)
  1. XELODA [Suspect]
     Indication: NEUROENDOCRINE TUMOUR
     Route: 048
  2. METFORMIN [Concomitant]
  3. CREON [Concomitant]
  4. ASPIRIN [Concomitant]
  5. RAMIPRIL [Concomitant]
  6. HYDROMORPH CONTIN [Concomitant]

REACTIONS (1)
  - Death [Fatal]
